FAERS Safety Report 9412795 (Version 1)
Quarter: 2013Q3

REPORT INFORMATION
  Report Type: Spontaneous
  Country: US (occurrence: US)
  Receive Date: 20130722
  Receipt Date: 20130722
  Transmission Date: 20140515
  Serious: No
  Sender: FDA-Public Use
  Company Number: US-BAYER-2013-086968

PATIENT
  Age: 67 Year
  Sex: Female

DRUGS (5)
  1. FINACEA [Suspect]
     Dosage: UNK UNK, ONCE
     Route: 061
     Dates: start: 20130627, end: 20130627
  2. DOXYCYCLIN [Suspect]
     Dosage: UNK UNK, ONCE
     Dates: start: 20130627, end: 20130627
  3. DIOVAN HCT [Concomitant]
     Indication: HYPERTENSION
     Dosage: UNK UNK, QD
     Route: 048
  4. LEVOXYL [Concomitant]
     Dosage: UNK UNK, QD
     Route: 048
  5. SIMVASTATIN [Concomitant]
     Dosage: UNK UNK, QD
     Route: 048

REACTIONS (5)
  - Oedema peripheral [Recovered/Resolved]
  - Erythema [Recovered/Resolved]
  - Feeling hot [Recovered/Resolved]
  - Pruritus [Recovered/Resolved]
  - Urticaria [Recovered/Resolved]
